FAERS Safety Report 4396779-8 (Version None)
Quarter: 2004Q3

REPORT INFORMATION
  Report Type: 
  Country: None (occurrence: None)
  Receive Date: 20040714
  Receipt Date: 20030825
  Transmission Date: 20050211
  Serious: Yes (Hospitalization)
  Sender: FDA-Public Use
  Company Number: AU-BRISTOL-MYERS SQUIBB COMPANY-12365573

PATIENT
  Age: 43 Year
  Sex: Female

DRUGS (2)
  1. ABATACEPT [Concomitant]
     Route: 042
     Dates: start: 20030417
  2. METHOTREXATE [Suspect]
     Route: 048
     Dates: start: 20020201

REACTIONS (1)
  - RHEUMATOID ARTHRITIS [None]
